FAERS Safety Report 4403542-8 (Version None)
Quarter: 2004Q3

REPORT INFORMATION
  Report Type: 
  Country: None (occurrence: None)
  Receive Date: 20040715
  Receipt Date: 20040708
  Transmission Date: 20050211
  Serious: Yes (Hospitalization)
  Sender: FDA-Public Use
  Company Number: US-JNJFOC-20040702686

PATIENT
  Age: 83 Year
  Sex: Female
  Weight: 61.2356 kg

DRUGS (1)
  1. DITROPAN XL [Suspect]
     Indication: HYPERTONIC BLADDER
     Dosage: 10 MG, ORAL; 20 MG, ORAL
     Route: 048
     Dates: start: 20020701

REACTIONS (2)
  - RECTAL HAEMORRHAGE [None]
  - RENAL HAEMORRHAGE [None]
